FAERS Safety Report 8059100-X (Version None)
Quarter: 2012Q1

REPORT INFORMATION
  Report Type: 
  Country: None (occurrence: None)
  Receive Date: 20120120
  Receipt Date: 20120112
  Transmission Date: 20120608
  Serious: Yes (Hospitalization)
  Sender: FDA-Public Use
  Company Number: US-BAYER-201041454NA

PATIENT
  Age: 31 Year
  Sex: Female

DRUGS (19)
  1. AVANDIA [Concomitant]
     Dosage: 4 MG, QD
     Route: 048
     Dates: start: 20061203
  2. ALPRAZOLAM [Concomitant]
     Dosage: 0.5 MG, HS
     Route: 048
     Dates: start: 20061203
  3. KEFLEX [Concomitant]
     Dosage: UNK UNK, QD
     Route: 048
     Dates: start: 20061101
  4. VICODIN [Concomitant]
     Indication: PAIN
     Dosage: UNK
     Dates: start: 20061101
  5. SPIRONOLACTONE [Concomitant]
     Dosage: 25 MG, QD
     Route: 048
     Dates: start: 20061203
  6. CRESTOR [Concomitant]
     Dosage: 5 MG, QD
     Dates: start: 20061203
  7. METFORMIN HCL [Concomitant]
     Dosage: 500 MG, QD
     Route: 048
     Dates: start: 20061203
  8. CITALOPRAM HYDROBROMIDE [Concomitant]
     Dosage: 20 MG, HS
     Route: 048
     Dates: start: 20061203
  9. IBUPROFEN [Concomitant]
     Dosage: 800 MG, TID
     Dates: start: 20061201
  10. PROTONIX [Concomitant]
     Dosage: 40 MG, QD
     Dates: start: 20061203
  11. VITAMIN TAB [Concomitant]
     Dosage: UNK UNK, QD
     Route: 048
     Dates: start: 20061203
  12. TOPROL-XL [Concomitant]
     Dosage: 100 MG, QD
     Route: 048
     Dates: start: 20061203
  13. TORADOL [Concomitant]
     Dosage: UNK
     Dates: start: 20061201
  14. DROSPIRENONE AND ETHINYL ESTRADIOL [Suspect]
     Indication: ACNE
     Dosage: UNK
     Dates: start: 20050101, end: 20060101
  15. LISINOPRIL [Concomitant]
     Dosage: 2.5 MG, QD
     Route: 048
     Dates: start: 20061203
  16. ASPIRIN [Concomitant]
     Dosage: 325 MG, QD
     Route: 048
     Dates: start: 20061203
  17. INSULIN [Concomitant]
     Dosage: UNK
     Dates: start: 20061201
  18. MAGNESIUM OXIDE [Concomitant]
     Dosage: 400 MG, BID
     Route: 048
     Dates: start: 20061203
  19. ACIDOPHILUS [Concomitant]
     Dosage: 16 MG, QD
     Dates: start: 20061203

REACTIONS (2)
  - NEPHROLITHIASIS [None]
  - DEEP VEIN THROMBOSIS [None]
